FAERS Safety Report 4620004-3 (Version None)
Quarter: 2005Q1

REPORT INFORMATION
  Report Type: 
  Country: None (occurrence: None)
  Receive Date: 20050328
  Receipt Date: 20050316
  Transmission Date: 20050727
  Serious: Yes (Hospitalization)
  Sender: FDA-Public Use
  Company Number: GB-BRISTOL-MYERS SQUIBB COMPANY-12899175

PATIENT
  Age: 58 Year
  Sex: Male

DRUGS (7)
  1. PRAVASTATIN SODIUM [Suspect]
  2. SIMVASTATIN [Suspect]
  3. BISOPROLOL FUMARATE [Concomitant]
  4. AMLODIPINE [Concomitant]
  5. SPIRONOLACTONE [Concomitant]
  6. RAMIPRIL [Concomitant]
  7. WARFARIN SODIUM [Concomitant]

REACTIONS (7)
  - ASTHENIA [None]
  - BACK PAIN [None]
  - DYSPNOEA [None]
  - FATIGUE [None]
  - HYPOAESTHESIA [None]
  - PERIPHERAL SENSORY NEUROPATHY [None]
  - RECTAL HAEMORRHAGE [None]
